FAERS Safety Report 5716978-X (Version None)
Quarter: 2008Q2

REPORT INFORMATION
  Report Type: 
  Country: None (occurrence: None)
  Receive Date: 20080424
  Receipt Date: 20080415
  Transmission Date: 20081010
  Serious: Yes (Hospitalization)
  Sender: FDA-Public Use
  Company Number: CN-PFIZER INC-2008033734

PATIENT
  Age: 76 Year
  Sex: Male

DRUGS (1)
  1. SUTENT [Suspect]
     Indication: RENAL CELL CARCINOMA
     Route: 048
     Dates: start: 20080321, end: 20080414

REACTIONS (9)
  - ANOREXIA [None]
  - ASTHENIA [None]
  - BODY TEMPERATURE INCREASED [None]
  - CONSTIPATION [None]
  - DRY MOUTH [None]
  - FEELING COLD [None]
  - PLATELET COUNT DECREASED [None]
  - SKIN DISCOLOURATION [None]
  - WHITE BLOOD CELL COUNT DECREASED [None]
